FAERS Safety Report 14436093 (Version 1)
Quarter: 2018Q1

REPORT INFORMATION
  Report Type: Spontaneous
  Country: US (occurrence: US)
  Receive Date: 20180125
  Receipt Date: 20180125
  Transmission Date: 20180509
  Serious: No
  Sender: FDA-Public Use
  Company Number: US-UNITED THERAPEUTICS-UNT-2017-009091

PATIENT
  Age: 54 Year
  Sex: Female
  Weight: 82 kg

DRUGS (6)
  1. REMODULIN [Suspect]
     Active Substance: TREPROSTINIL
     Indication: PULMONARY HYPERTENSION
     Dosage: 0.012 ?G/KG, CONTINUING
     Route: 058
     Dates: start: 20170612
  2. REMODULIN [Suspect]
     Active Substance: TREPROSTINIL
     Dosage: 0.013 ?G/KG, CONTINUING
     Route: 058
  3. ELIQUIS [Concomitant]
     Active Substance: APIXABAN
     Indication: PRODUCT USED FOR UNKNOWN INDICATION
  4. NIFEDIPINE. [Concomitant]
     Active Substance: NIFEDIPINE
     Indication: PRODUCT USED FOR UNKNOWN INDICATION
  5. TRACLEER [Concomitant]
     Active Substance: BOSENTAN
     Indication: PRODUCT USED FOR UNKNOWN INDICATION
  6. SILDENAFIL CITRATE. [Concomitant]
     Active Substance: SILDENAFIL CITRATE
     Indication: PRODUCT USED FOR UNKNOWN INDICATION

REACTIONS (5)
  - Diarrhoea [Unknown]
  - Muscular weakness [Unknown]
  - Insomnia [Unknown]
  - Infusion site pain [Unknown]
  - Nausea [Unknown]

NARRATIVE: CASE EVENT DATE: 201706
